FAERS Safety Report 12854926 (Version 2)
Quarter: 2016Q4

REPORT INFORMATION
  Report Type: Report from Study
  Country: US (occurrence: US)
  Receive Date: 20161017
  Receipt Date: 20161201
  Transmission Date: 20170207
  Serious: Yes (Other)
  Sender: FDA-Public Use
  Company Number: PHEH2016US026399

PATIENT
  Sex: Male

DRUGS (1)
  1. ENTRESTO [Suspect]
     Active Substance: SACUBITRIL\VALSARTAN
     Indication: PRODUCT USED FOR UNKNOWN INDICATION
     Dosage: 50 MG, TID
     Route: 065

REACTIONS (13)
  - Urinary incontinence [Unknown]
  - Mass [Unknown]
  - Dyspnoea [Unknown]
  - Weight fluctuation [Unknown]
  - Swelling face [Recovered/Resolved]
  - Chromaturia [Unknown]
  - Chest discomfort [Unknown]
  - Fall [Unknown]
  - Cough [Unknown]
  - Respiratory rate increased [Unknown]
  - Sinus disorder [Unknown]
  - Inappropriate schedule of drug administration [Unknown]
  - Spinal disorder [Unknown]
